FAERS Safety Report 24381185 (Version 1)
Quarter: 2024Q4

REPORT INFORMATION
  Report Type: Spontaneous
  Country: US (occurrence: US)
  Receive Date: 20241001
  Receipt Date: 20241001
  Transmission Date: 20250114
  Serious: No
  Sender: SANDOZ
  Company Number: US-002147023-NVSC2023US170482

PATIENT
  Sex: Female

DRUGS (1)
  1. CIPROFLOXACIN HYDROCHLORIDE\HYDROCORTISONE [Suspect]
     Active Substance: CIPROFLOXACIN HYDROCHLORIDE\HYDROCORTISONE
     Indication: Product used for unknown indication
     Dosage: UNK, DAILY (EYE)
     Route: 047

REACTIONS (6)
  - Emotional distress [Unknown]
  - Ear disorder [Unknown]
  - Pain [Unknown]
  - Foot fracture [Unknown]
  - Product dose omission issue [Unknown]
  - Product availability issue [Unknown]
